FAERS Safety Report 24591416 (Version 3)
Quarter: 2025Q2

REPORT INFORMATION
  Report Type: Spontaneous
  Country: CA (occurrence: CA)
  Receive Date: 20241108
  Receipt Date: 20250619
  Transmission Date: 20250717
  Serious: Yes (Hospitalization, Other)
  Sender: Haleon PLC
  Company Number: CA-002147023-NVSC2024CA108311

PATIENT
  Age: 75 Year
  Sex: Female
  Weight: 70 kg

DRUGS (182)
  1. DICLOFENAC [Suspect]
     Active Substance: DICLOFENAC
     Indication: Arthralgia
  2. DICLOFENAC [Suspect]
     Active Substance: DICLOFENAC
     Indication: Product used for unknown indication
  3. PREGABALIN [Suspect]
     Active Substance: PREGABALIN
     Indication: Arthralgia
  4. PREGABALIN [Suspect]
     Active Substance: PREGABALIN
  5. PREGABALIN [Suspect]
     Active Substance: PREGABALIN
  6. PREGABALIN [Suspect]
     Active Substance: PREGABALIN
  7. PREGABALIN [Suspect]
     Active Substance: PREGABALIN
  8. PREGABALIN [Suspect]
     Active Substance: PREGABALIN
  9. VITAMIN D3 [Suspect]
     Active Substance: CHOLECALCIFEROL
     Indication: Product used for unknown indication
  10. VITAMIN D3 [Suspect]
     Active Substance: CHOLECALCIFEROL
  11. VITAMIN D3 [Suspect]
     Active Substance: CHOLECALCIFEROL
  12. VITAMIN D3 [Suspect]
     Active Substance: CHOLECALCIFEROL
  13. VITAMIN D3 [Suspect]
     Active Substance: CHOLECALCIFEROL
  14. VITAMIN D3 [Suspect]
     Active Substance: CHOLECALCIFEROL
  15. VITAMIN D3 [Suspect]
     Active Substance: CHOLECALCIFEROL
  16. VITAMIN D3 [Suspect]
     Active Substance: CHOLECALCIFEROL
  17. NAPROXEN SODIUM [Concomitant]
     Active Substance: NAPROXEN SODIUM
     Indication: Arthralgia
  18. NAPROXEN SODIUM [Concomitant]
     Active Substance: NAPROXEN SODIUM
     Indication: Product used for unknown indication
  19. AMOXICILLIN [Concomitant]
     Active Substance: AMOXICILLIN
     Indication: Product used for unknown indication
  20. AMOXICILLIN [Concomitant]
     Active Substance: AMOXICILLIN
  21. ATORVASTATIN CALCIUM [Suspect]
     Active Substance: ATORVASTATIN CALCIUM
     Indication: Dyslipidaemia
  22. ATORVASTATIN CALCIUM [Suspect]
     Active Substance: ATORVASTATIN CALCIUM
     Indication: Product used for unknown indication
  23. ATORVASTATIN CALCIUM [Suspect]
     Active Substance: ATORVASTATIN CALCIUM
  24. ATORVASTATIN CALCIUM [Suspect]
     Active Substance: ATORVASTATIN CALCIUM
  25. CHOLECALCIFEROL [Concomitant]
     Active Substance: CHOLECALCIFEROL
     Indication: Product used for unknown indication
  26. CHOLECALCIFEROL [Concomitant]
     Active Substance: CHOLECALCIFEROL
  27. VITAMINS NOS [Suspect]
     Active Substance: VITAMINS
     Indication: Product used for unknown indication
  28. ADVIL [Suspect]
     Active Substance: IBUPROFEN
     Indication: Arthralgia
  29. ADVIL [Suspect]
     Active Substance: IBUPROFEN
     Indication: Product used for unknown indication
  30. GABAPENTIN [Suspect]
     Active Substance: GABAPENTIN
     Indication: Arthralgia
  31. GABAPENTIN [Suspect]
     Active Substance: GABAPENTIN
  32. GABAPENTIN [Suspect]
     Active Substance: GABAPENTIN
  33. GABAPENTIN [Suspect]
     Active Substance: GABAPENTIN
  34. PYRIDOXINE HYDROCHLORIDE [Concomitant]
     Active Substance: PYRIDOXINE HYDROCHLORIDE
     Indication: Product used for unknown indication
  35. PYRIDOXINE HYDROCHLORIDE [Concomitant]
     Active Substance: PYRIDOXINE HYDROCHLORIDE
  36. NAPROXEN [Suspect]
     Active Substance: NAPROXEN
     Indication: Arthralgia
  37. NAPROXEN [Suspect]
     Active Substance: NAPROXEN
  38. IPRATROPIUM BROMIDE [Suspect]
     Active Substance: IPRATROPIUM BROMIDE
     Indication: Product used for unknown indication
  39. IPRATROPIUM BROMIDE [Suspect]
     Active Substance: IPRATROPIUM BROMIDE
     Route: 050
  40. DICLOFENAC [Concomitant]
     Active Substance: DICLOFENAC
     Indication: Product used for unknown indication
  41. ESTRADIOL [Suspect]
     Active Substance: ESTRADIOL
     Indication: Product used for unknown indication
  42. ESTRADIOL [Suspect]
     Active Substance: ESTRADIOL
  43. ESTRADIOL [Suspect]
     Active Substance: ESTRADIOL
     Route: 050
  44. ESTRADIOL [Suspect]
     Active Substance: ESTRADIOL
  45. LATANOPROST [Suspect]
     Active Substance: LATANOPROST
     Indication: Glaucoma
  46. LATANOPROST [Suspect]
     Active Substance: LATANOPROST
  47. LATANOPROST [Suspect]
     Active Substance: LATANOPROST
  48. LATANOPROST [Suspect]
     Active Substance: LATANOPROST
  49. LATANOPROST [Suspect]
     Active Substance: LATANOPROST
  50. LATANOPROST [Suspect]
     Active Substance: LATANOPROST
  51. LATANOPROST [Suspect]
     Active Substance: LATANOPROST
  52. LATANOPROST [Suspect]
     Active Substance: LATANOPROST
  53. LATANOPROST [Suspect]
     Active Substance: LATANOPROST
  54. LATANOPROST [Suspect]
     Active Substance: LATANOPROST
  55. LATANOPROST [Suspect]
     Active Substance: LATANOPROST
  56. LATANOPROST [Suspect]
     Active Substance: LATANOPROST
  57. LATANOPROST [Suspect]
     Active Substance: LATANOPROST
  58. LATANOPROST [Suspect]
     Active Substance: LATANOPROST
  59. LATANOPROST [Suspect]
     Active Substance: LATANOPROST
  60. LATANOPROST [Suspect]
     Active Substance: LATANOPROST
  61. BRINZOLAMIDE\TIMOLOL MALEATE [Suspect]
     Active Substance: BRINZOLAMIDE\TIMOLOL MALEATE
     Indication: Glaucoma
  62. BRINZOLAMIDE\TIMOLOL MALEATE [Suspect]
     Active Substance: BRINZOLAMIDE\TIMOLOL MALEATE
  63. BRINZOLAMIDE\TIMOLOL MALEATE [Suspect]
     Active Substance: BRINZOLAMIDE\TIMOLOL MALEATE
  64. BRINZOLAMIDE\TIMOLOL MALEATE [Suspect]
     Active Substance: BRINZOLAMIDE\TIMOLOL MALEATE
  65. BRINZOLAMIDE\TIMOLOL MALEATE [Suspect]
     Active Substance: BRINZOLAMIDE\TIMOLOL MALEATE
  66. BRINZOLAMIDE\TIMOLOL MALEATE [Suspect]
     Active Substance: BRINZOLAMIDE\TIMOLOL MALEATE
  67. BRINZOLAMIDE\TIMOLOL MALEATE [Suspect]
     Active Substance: BRINZOLAMIDE\TIMOLOL MALEATE
  68. BRINZOLAMIDE\TIMOLOL MALEATE [Suspect]
     Active Substance: BRINZOLAMIDE\TIMOLOL MALEATE
  69. BRINZOLAMIDE\TIMOLOL MALEATE [Suspect]
     Active Substance: BRINZOLAMIDE\TIMOLOL MALEATE
  70. BRINZOLAMIDE\TIMOLOL MALEATE [Suspect]
     Active Substance: BRINZOLAMIDE\TIMOLOL MALEATE
  71. BRINZOLAMIDE\TIMOLOL MALEATE [Suspect]
     Active Substance: BRINZOLAMIDE\TIMOLOL MALEATE
  72. BRINZOLAMIDE\TIMOLOL MALEATE [Suspect]
     Active Substance: BRINZOLAMIDE\TIMOLOL MALEATE
  73. TELMISARTAN [Suspect]
     Active Substance: TELMISARTAN
     Indication: Hypertension
  74. TELMISARTAN [Suspect]
     Active Substance: TELMISARTAN
  75. TELMISARTAN [Suspect]
     Active Substance: TELMISARTAN
  76. ACETAMINOPHEN [Concomitant]
     Active Substance: ACETAMINOPHEN
     Indication: Product used for unknown indication
  77. ACETAMINOPHEN [Concomitant]
     Active Substance: ACETAMINOPHEN
     Indication: Product used for unknown indication
  78. ESTRADIOL [Suspect]
     Active Substance: ESTRADIOL
     Indication: Menopausal symptoms
  79. ESTRADIOL [Suspect]
     Active Substance: ESTRADIOL
     Indication: Arthralgia
  80. ESTRADIOL [Suspect]
     Active Substance: ESTRADIOL
  81. ESTRADIOL [Suspect]
     Active Substance: ESTRADIOL
  82. ESTRADIOL [Suspect]
     Active Substance: ESTRADIOL
  83. ESTRADIOL [Suspect]
     Active Substance: ESTRADIOL
  84. ATORVASTATIN CALCIUM [Concomitant]
     Active Substance: ATORVASTATIN CALCIUM
     Indication: Dyslipidaemia
  85. ATORVASTATIN CALCIUM [Concomitant]
     Active Substance: ATORVASTATIN CALCIUM
     Indication: Product used for unknown indication
  86. ATORVASTATIN CALCIUM [Concomitant]
     Active Substance: ATORVASTATIN CALCIUM
  87. TUMS ULTRA [Suspect]
     Active Substance: CALCIUM CARBONATE
     Indication: Product used for unknown indication
  88. DICLOFENAC SODIUM [Suspect]
     Active Substance: DICLOFENAC SODIUM
     Indication: Arthralgia
  89. DICLOFENAC SODIUM [Suspect]
     Active Substance: DICLOFENAC SODIUM
  90. AMOXICILLIN [Suspect]
     Active Substance: AMOXICILLIN
     Indication: Sinusitis
  91. AMOXICILLIN [Suspect]
     Active Substance: AMOXICILLIN
  92. BRINZOLAMIDE\TIMOLOL MALEATE [Suspect]
     Active Substance: BRINZOLAMIDE\TIMOLOL MALEATE
     Indication: Glaucoma
  93. BRINZOLAMIDE\TIMOLOL MALEATE [Suspect]
     Active Substance: BRINZOLAMIDE\TIMOLOL MALEATE
  94. BRINZOLAMIDE\TIMOLOL MALEATE [Suspect]
     Active Substance: BRINZOLAMIDE\TIMOLOL MALEATE
  95. BRINZOLAMIDE\TIMOLOL MALEATE [Suspect]
     Active Substance: BRINZOLAMIDE\TIMOLOL MALEATE
  96. ACETAMINOPHEN [Suspect]
     Active Substance: ACETAMINOPHEN
     Indication: Product used for unknown indication
  97. ACETAMINOPHEN [Suspect]
     Active Substance: ACETAMINOPHEN
  98. ACETAMINOPHEN [Suspect]
     Active Substance: ACETAMINOPHEN
  99. ACETAMINOPHEN [Suspect]
     Active Substance: ACETAMINOPHEN
  100. ACETAMINOPHEN [Suspect]
     Active Substance: ACETAMINOPHEN
  101. PYRIDOXINE HYDROCHLORIDE [Suspect]
     Active Substance: PYRIDOXINE HYDROCHLORIDE
     Indication: Product used for unknown indication
  102. PYRIDOXINE HYDROCHLORIDE [Suspect]
     Active Substance: PYRIDOXINE HYDROCHLORIDE
  103. PYRIDOXINE HYDROCHLORIDE [Suspect]
     Active Substance: PYRIDOXINE HYDROCHLORIDE
  104. PYRIDOXINE HYDROCHLORIDE [Suspect]
     Active Substance: PYRIDOXINE HYDROCHLORIDE
  105. PYRIDOXINE HYDROCHLORIDE [Suspect]
     Active Substance: PYRIDOXINE HYDROCHLORIDE
  106. PYRIDOXINE HYDROCHLORIDE [Suspect]
     Active Substance: PYRIDOXINE HYDROCHLORIDE
  107. PYRIDOXINE HYDROCHLORIDE [Suspect]
     Active Substance: PYRIDOXINE HYDROCHLORIDE
  108. PYRIDOXINE HYDROCHLORIDE [Suspect]
     Active Substance: PYRIDOXINE HYDROCHLORIDE
  109. IPRATROPIUM [Suspect]
     Active Substance: IPRATROPIUM
     Indication: Arthralgia
  110. IPRATROPIUM [Suspect]
     Active Substance: IPRATROPIUM
     Indication: Rhinitis
     Route: 045
  111. IPRATROPIUM [Suspect]
     Active Substance: IPRATROPIUM
  112. IPRATROPIUM [Suspect]
     Active Substance: IPRATROPIUM
     Route: 045
  113. IPRATROPIUM [Suspect]
     Active Substance: IPRATROPIUM
  114. IPRATROPIUM [Suspect]
     Active Substance: IPRATROPIUM
     Route: 045
  115. IPRATROPIUM [Suspect]
     Active Substance: IPRATROPIUM
  116. IPRATROPIUM [Suspect]
     Active Substance: IPRATROPIUM
     Route: 045
  117. IPRATROPIUM [Suspect]
     Active Substance: IPRATROPIUM
     Route: 045
  118. IPRATROPIUM [Suspect]
     Active Substance: IPRATROPIUM
     Route: 045
  119. PYRIDOXINE [Suspect]
     Active Substance: PYRIDOXINE
     Indication: Product used for unknown indication
  120. PYRIDOXINE [Suspect]
     Active Substance: PYRIDOXINE
     Indication: Rhinitis
  121. CLONAZEPAM [Suspect]
     Active Substance: CLONAZEPAM
     Indication: Product used for unknown indication
  122. CLONAZEPAM [Suspect]
     Active Substance: CLONAZEPAM
  123. CLONAZEPAM [Suspect]
     Active Substance: CLONAZEPAM
  124. CLONAZEPAM [Suspect]
     Active Substance: CLONAZEPAM
  125. CLONAZEPAM [Suspect]
     Active Substance: CLONAZEPAM
  126. CLONAZEPAM [Suspect]
     Active Substance: CLONAZEPAM
  127. TELMISARTAN [Suspect]
     Active Substance: TELMISARTAN
     Indication: Hypertension
  128. TELMISARTAN [Suspect]
     Active Substance: TELMISARTAN
     Indication: Glaucoma
  129. TELMISARTAN [Suspect]
     Active Substance: TELMISARTAN
  130. TELMISARTAN [Suspect]
     Active Substance: TELMISARTAN
  131. TELMISARTAN [Suspect]
     Active Substance: TELMISARTAN
  132. ACETAMINOPHEN\PSEUDOEPHEDRINE [Concomitant]
     Active Substance: ACETAMINOPHEN\PSEUDOEPHEDRINE
     Indication: Product used for unknown indication
  133. PREGABALIN [Suspect]
     Active Substance: PREGABALIN
     Indication: Arthralgia
  134. ZOPICLONE [Suspect]
     Active Substance: ZOPICLONE
     Indication: Insomnia
  135. ZOPICLONE [Suspect]
     Active Substance: ZOPICLONE
     Indication: Dyslipidaemia
  136. ZOPICLONE [Suspect]
     Active Substance: ZOPICLONE
     Indication: Arthralgia
  137. ZOPICLONE [Suspect]
     Active Substance: ZOPICLONE
     Indication: Sinusitis
  138. ZOPICLONE [Suspect]
     Active Substance: ZOPICLONE
  139. ZOPICLONE [Suspect]
     Active Substance: ZOPICLONE
  140. ZOPICLONE [Suspect]
     Active Substance: ZOPICLONE
  141. ZOPICLONE [Suspect]
     Active Substance: ZOPICLONE
  142. ZOPICLONE [Suspect]
     Active Substance: ZOPICLONE
  143. ZOPICLONE [Suspect]
     Active Substance: ZOPICLONE
  144. ZOPICLONE [Suspect]
     Active Substance: ZOPICLONE
  145. ZOPICLONE [Suspect]
     Active Substance: ZOPICLONE
  146. ZOPICLONE [Suspect]
     Active Substance: ZOPICLONE
  147. BRINZOLAMIDE [Suspect]
     Active Substance: BRINZOLAMIDE
     Indication: Glaucoma
  148. CHOLECALCIFEROL [Suspect]
     Active Substance: CHOLECALCIFEROL
     Indication: Product used for unknown indication
  149. VITAMIN C [Suspect]
     Active Substance: ASCORBIC ACID
     Indication: Product used for unknown indication
  150. AMOXICILLIN TRIHYDRATE [Suspect]
     Active Substance: AMOXICILLIN
     Indication: Sinusitis
  151. IPRATROPIUM [Suspect]
     Active Substance: IPRATROPIUM
     Indication: Rhinitis
  152. IPRATROPIUM [Suspect]
     Active Substance: IPRATROPIUM
     Route: 050
  153. IPRATROPIUM [Suspect]
     Active Substance: IPRATROPIUM
     Route: 050
  154. IPRATROPIUM [Suspect]
     Active Substance: IPRATROPIUM
     Route: 050
  155. IPRATROPIUM [Suspect]
     Active Substance: IPRATROPIUM
     Route: 050
  156. IPRATROPIUM [Suspect]
     Active Substance: IPRATROPIUM
  157. IPRATROPIUM [Suspect]
     Active Substance: IPRATROPIUM
     Route: 050
  158. IPRATROPIUM [Suspect]
     Active Substance: IPRATROPIUM
     Route: 050
  159. ATORVASTATIN [Suspect]
     Active Substance: ATORVASTATIN
     Indication: Dyslipidaemia
  160. PYRIDOXINE HYDROCHLORIDE [Concomitant]
     Active Substance: PYRIDOXINE HYDROCHLORIDE
     Indication: Product used for unknown indication
  161. VITAMINS NOS [Concomitant]
     Active Substance: VITAMINS
     Indication: Product used for unknown indication
  162. BRINZOLAMIDE\TIMOLOL MALEATE [Suspect]
     Active Substance: BRINZOLAMIDE\TIMOLOL MALEATE
     Indication: Glaucoma
  163. BRINZOLAMIDE\TIMOLOL MALEATE [Suspect]
     Active Substance: BRINZOLAMIDE\TIMOLOL MALEATE
  164. CLONAZEPAM [Suspect]
     Active Substance: CLONAZEPAM
     Indication: Product used for unknown indication
  165. IPRATROPIUM BROMIDE [Concomitant]
     Active Substance: IPRATROPIUM BROMIDE
     Indication: Rhinitis
     Route: 050
  166. NICOTINAMIDE [Suspect]
     Active Substance: NIACINAMIDE
     Indication: Product used for unknown indication
  167. IBUPROFEN [Suspect]
     Active Substance: IBUPROFEN
     Indication: Arthralgia
  168. IBUPROFEN [Suspect]
     Active Substance: IBUPROFEN
     Indication: Product used for unknown indication
  169. IBUPROFEN [Suspect]
     Active Substance: IBUPROFEN
     Indication: Arthralgia
  170. ATORVASTATIN [Suspect]
     Active Substance: ATORVASTATIN
     Indication: Dyslipidaemia
  171. BRINZOLAMIDE\TIMOLOL [Suspect]
     Active Substance: BRINZOLAMIDE\TIMOLOL
     Indication: Glaucoma
  172. BRINZOLAMIDE\TIMOLOL [Suspect]
     Active Substance: BRINZOLAMIDE\TIMOLOL
  173. ACETAMINOPHEN\PSEUDOEPHEDRINE [Concomitant]
     Active Substance: ACETAMINOPHEN\PSEUDOEPHEDRINE
     Indication: Product used for unknown indication
  174. VITAMIN A [Suspect]
     Active Substance: VITAMIN A
     Indication: Product used for unknown indication
  175. BRINZOLAMIDE\TIMOLOL [Suspect]
     Active Substance: BRINZOLAMIDE\TIMOLOL
     Indication: Glaucoma
  176. RIBOFLAVIN [Suspect]
     Active Substance: RIBOFLAVIN
     Indication: Product used for unknown indication
  177. ERGOCALCIFEROL [Suspect]
     Active Substance: ERGOCALCIFEROL
     Indication: Product used for unknown indication
  178. PSEUDOEPHEDRINE [Suspect]
     Active Substance: PSEUDOEPHEDRINE
     Indication: Product used for unknown indication
  179. THIAMINE HYDROCHLORIDE [Suspect]
     Active Substance: THIAMINE HYDROCHLORIDE
     Indication: Product used for unknown indication
  180. FOLIC ACID [Suspect]
     Active Substance: FOLIC ACID
     Indication: Product used for unknown indication
  181. CHOLECALCIFEROL [Suspect]
     Active Substance: CHOLECALCIFEROL
     Indication: Product used for unknown indication
  182. DICLOFENAC [Concomitant]
     Active Substance: DICLOFENAC
     Indication: Product used for unknown indication

REACTIONS (8)
  - Toxic epidermal necrolysis [Recovered/Resolved]
  - Off label use [Recovered/Resolved]
  - Nikolsky^s sign test [Recovered/Resolved]
  - Epidermal necrosis [Recovered/Resolved]
  - Haemoglobin decreased [Recovered/Resolved]
  - Product use in unapproved indication [Recovered/Resolved]
  - Rash erythematous [Recovered/Resolved]
  - Rash papular [Recovered/Resolved]
